FAERS Safety Report 9338796 (Version 2)
Quarter: 2013Q2

REPORT INFORMATION
  Report Type: Spontaneous
  Country: US (occurrence: US)
  Receive Date: 20130610
  Receipt Date: 20130625
  Transmission Date: 20140414
  Serious: Yes (Hospitalization, Other)
  Sender: FDA-Public Use
  Company Number: US-ASTELLAS-2013US005971

PATIENT
  Age: 66 Year
  Sex: Male
  Weight: 53 kg

DRUGS (1)
  1. XTANDI [Suspect]
     Indication: PROSTATE CANCER
     Dosage: 160 MG, UID/QD
     Route: 048
     Dates: start: 201305

REACTIONS (4)
  - Vocal cord paralysis [Unknown]
  - Aspiration [Unknown]
  - Blood potassium decreased [Unknown]
  - Pneumonia [Unknown]
